FAERS Safety Report 22015579 (Version 2)
Quarter: 2023Q1

REPORT INFORMATION
  Report Type: Spontaneous
  Country: US (occurrence: US)
  Receive Date: 20230221
  Receipt Date: 20230329
  Transmission Date: 20230418
  Serious: No
  Sender: FDA-Public Use
  Company Number: US-SA-SAC20230220000008

PATIENT
  Age: 63 Year
  Sex: Female
  Weight: 53.977 kg

DRUGS (21)
  1. KEVZARA [Suspect]
     Active Substance: SARILUMAB
     Indication: Pruritus
     Dosage: 200 MG, QOW
     Route: 058
     Dates: start: 20221230
  2. KEVZARA [Suspect]
     Active Substance: SARILUMAB
     Indication: Arthritis
  3. KEVZARA [Suspect]
     Active Substance: SARILUMAB
     Indication: Essential hypertension
  4. KEVZARA [Suspect]
     Active Substance: SARILUMAB
     Indication: Ill-defined disorder
  5. AMLODIPINE BESYLATE [Concomitant]
     Active Substance: AMLODIPINE BESYLATE
  6. HYALURONIC ACID SODIUM [Concomitant]
  7. MAGNESIUM OXIDE [Concomitant]
     Active Substance: MAGNESIUM OXIDE
  8. CALCIUM CARBONATE\VITAMIN D [Concomitant]
     Active Substance: CALCIUM CARBONATE\VITAMIN D
  9. FAMOTIDINE [Concomitant]
     Active Substance: FAMOTIDINE
  10. FEXOFENADINE HCL [Concomitant]
     Active Substance: FEXOFENADINE HYDROCHLORIDE
  11. VITAMIN D3 [Concomitant]
     Active Substance: CHOLECALCIFEROL
  12. PREDNISONE [Concomitant]
     Active Substance: PREDNISONE
  13. FERROUS SULFATE [Concomitant]
     Active Substance: FERROUS SULFATE
  14. LEFLUNOMIDE [Concomitant]
     Active Substance: LEFLUNOMIDE
  15. ACETAMINOPHEN\HYDROCODONE [Concomitant]
     Active Substance: ACETAMINOPHEN\HYDROCODONE
  16. ASPIRIN [Concomitant]
     Active Substance: ASPIRIN
  17. OMEPRAZOLE [Concomitant]
     Active Substance: OMEPRAZOLE
  18. HEMP [Concomitant]
     Active Substance: HEMP
  19. HYALURONIC ACID;SODIUM CHLORIDE [Concomitant]
     Dosage: 500MG
  20. CALCIUM 600 + D3 PLUS MINERALS [Concomitant]
  21. MORINGA LEAF [Concomitant]

REACTIONS (3)
  - Pruritus [Not Recovered/Not Resolved]
  - Knee arthroplasty [Unknown]
  - Product use in unapproved indication [Unknown]

NARRATIVE: CASE EVENT DATE: 20221230
